FAERS Safety Report 23585214 (Version 1)
Quarter: 2024Q1

REPORT INFORMATION
  Report Type: Spontaneous
  Country: US (occurrence: US)
  Receive Date: 20240301
  Receipt Date: 20240301
  Transmission Date: 20240410
  Serious: Yes (Hospitalization, Other)
  Sender: FDA-Public Use
  Company Number: US-Merck Healthcare KGaA-2024011090

PATIENT
  Age: 37 Year
  Sex: Female
  Weight: 52 kg

DRUGS (24)
  1. AVELUMAB [Suspect]
     Active Substance: AVELUMAB
     Indication: Thymoma
     Route: 042
     Dates: start: 20230426
  2. ELIQUIS [Suspect]
     Active Substance: APIXABAN
     Indication: Product used for unknown indication
     Route: 048
     Dates: start: 202004
  3. ELIQUIS [Suspect]
     Active Substance: APIXABAN
     Route: 048
     Dates: start: 20220401
  4. ELIQUIS [Suspect]
     Active Substance: APIXABAN
  5. ABRAXANE [Concomitant]
     Active Substance: PACLITAXEL
     Indication: Thymoma
     Dates: start: 20221007, end: 20230103
  6. GEMCITABINE [Concomitant]
     Active Substance: GEMCITABINE
     Indication: Thymoma
     Dates: start: 20220617, end: 20221007
  7. ADRIAMYCIN [Concomitant]
     Active Substance: DOXORUBICIN HYDROCHLORIDE
     Indication: Thymoma
     Dates: start: 20210624
  8. ADRIAMYCIN [Concomitant]
     Active Substance: DOXORUBICIN HYDROCHLORIDE
     Dates: start: 20210317, end: 20211028
  9. CISPLATIN [Concomitant]
     Active Substance: CISPLATIN
     Indication: Thymoma
     Dates: start: 20210317, end: 20210428
  10. CISPLATIN [Concomitant]
     Active Substance: CISPLATIN
     Dates: start: 20210624
  11. CISPLATIN [Concomitant]
     Active Substance: CISPLATIN
     Dates: start: 20200512, end: 20200716
  12. SPIRONOLACTONE [Concomitant]
     Active Substance: SPIRONOLACTONE
     Indication: Product used for unknown indication
     Route: 048
     Dates: start: 20220310
  13. PANTOPRAZOLE [Concomitant]
     Active Substance: PANTOPRAZOLE
     Indication: Product used for unknown indication
     Route: 048
     Dates: start: 20210101
  14. FUROSEMIDE [Concomitant]
     Active Substance: FUROSEMIDE
     Indication: Product used for unknown indication
     Dosage: 120 MG IN THE MORNING AND 80 MG IN THE NIGHT
     Route: 048
     Dates: start: 20220310
  15. CHOLECALCIFEROL [Concomitant]
     Active Substance: CHOLECALCIFEROL
     Indication: Product used for unknown indication
     Dosage: 2000 UNIT
     Route: 048
     Dates: start: 20191218
  16. CHOLECALCIFEROL [Concomitant]
     Active Substance: CHOLECALCIFEROL
     Dosage: 2000 UNIT
     Route: 048
     Dates: start: 20220310
  17. ETOPOSIDE [Concomitant]
     Active Substance: ETOPOSIDE
     Indication: Thymoma
     Dates: start: 20200512, end: 20200716
  18. CYCLOPHOSPHAMIDE [Concomitant]
     Active Substance: CYCLOPHOSPHAMIDE
     Indication: Thymoma
     Dates: start: 20210317, end: 20210428
  19. CYCLOPHOSPHAMIDE [Concomitant]
     Active Substance: CYCLOPHOSPHAMIDE
     Dates: start: 20210624
  20. EVEROLIMUS [Concomitant]
     Active Substance: EVEROLIMUS
     Indication: Thymoma
     Dates: start: 20211012, end: 20211022
  21. EVEROLIMUS [Concomitant]
     Active Substance: EVEROLIMUS
     Dates: start: 20210922
  22. EVEROLIMUS [Concomitant]
     Active Substance: EVEROLIMUS
     Dates: start: 20210930, end: 20211110
  23. PEMETREXED [Concomitant]
     Active Substance: PEMETREXED
     Indication: Thymoma
     Dates: start: 20220506, end: 20220614
  24. PALBOCICLIB [Concomitant]
     Active Substance: PALBOCICLIB
     Indication: Thymoma
     Dates: start: 20230103, end: 20230301

REACTIONS (4)
  - Pulmonary haemorrhage [Recovered/Resolved]
  - Pulmonary embolism [Recovered/Resolved]
  - Pulmonary mass [Unknown]
  - Off label use [Unknown]

NARRATIVE: CASE EVENT DATE: 20230428
